FAERS Safety Report 16055815 (Version 1)
Quarter: 2019Q2

REPORT INFORMATION
  Report Type: Spontaneous
  Country: US (occurrence: US)
  Receive Date: 20190308
  Receipt Date: 20190308
  Transmission Date: 20190711
  Serious: Yes (Other)
  Sender: FDA-Public Use
  Company Number: None

PATIENT
  Age: 50 Year
  Sex: Female
  Weight: 47 kg

DRUGS (1)
  1. TRANEXAMIC ACID. [Suspect]
     Active Substance: TRANEXAMIC ACID
     Indication: DENTAL COSMETIC PROCEDURE
     Dosage: ?          QUANTITY:100 CAPSULE(S);?
     Route: 048
     Dates: start: 20190213, end: 20190303

REACTIONS (1)
  - Toothache [None]

NARRATIVE: CASE EVENT DATE: 20190301
